FAERS Safety Report 21142353 (Version 2)
Quarter: 2022Q3

REPORT INFORMATION
  Report Type: Other
  Country: US (occurrence: None)
  Receive Date: 20220728
  Receipt Date: 20220816
  Transmission Date: 20221026
  Serious: No
  Sender: FDA-Public Use
  Company Number: US-ROCHE-3146639

PATIENT
  Age: 41 Year
  Sex: Female
  Weight: 64.468 kg

DRUGS (7)
  1. OCREVUS [Suspect]
     Active Substance: OCRELIZUMAB
     Indication: Relapsing-remitting multiple sclerosis
     Dosage: DAY 1 AND DAY 15, AND 600 MG EVERY 6 MONTHS, DOT: 05-OCT-2021, 31-MAR-2021, 18-AUG-2020, 25-FEB-2020
     Route: 042
     Dates: start: 202003
  2. ZENPEP [Concomitant]
     Active Substance: PANCRELIPASE AMYLASE\PANCRELIPASE LIPASE\PANCRELIPASE PROTEASE
     Indication: Pancreatic enzymes decreased
     Route: 048
     Dates: start: 2020
  3. VERAPAMIL [Concomitant]
     Active Substance: VERAPAMIL HYDROCHLORIDE
     Indication: Fibroma
     Route: 061
  4. PROGESTERONE [Concomitant]
     Active Substance: PROGESTERONE
     Route: 061
     Dates: start: 202001
  5. GABAPENTIN [Concomitant]
     Active Substance: GABAPENTIN
  6. LEVOTHYROXINE [Concomitant]
     Active Substance: LEVOTHYROXINE
  7. PREDNISONE [Concomitant]
     Active Substance: PREDNISONE

REACTIONS (4)
  - COVID-19 [Not Recovered/Not Resolved]
  - Reflux laryngitis [Recovering/Resolving]
  - Feeling hot [Not Recovered/Not Resolved]
  - Blood oestrogen increased [Unknown]

NARRATIVE: CASE EVENT DATE: 20220101
